FAERS Safety Report 9066633 (Version 1)
Quarter: 2013Q1

REPORT INFORMATION
  Report Type: Report from Study
  Country: US (occurrence: US)
  Receive Date: 20130131
  Receipt Date: 20130131
  Transmission Date: 20140127
  Serious: No
  Sender: FDA-Public Use
  Company Number: US-ABBOTT-12P-163-1015849-00

PATIENT
  Age: 51 Year
  Sex: Female

DRUGS (19)
  1. HUMIRA [Suspect]
     Indication: COLITIS ULCERATIVE
     Dates: start: 20121123, end: 20121123
  2. HUMIRA [Suspect]
     Dates: start: 20121207
  3. HERCEPTIN [Concomitant]
     Indication: CHEMOTHERAPY
  4. LIALDA [Concomitant]
     Indication: COLITIS ULCERATIVE
     Dosage: IN THE MORNING
     Route: 048
  5. LEVOTHYROXINE [Concomitant]
     Indication: HYPOTHYROIDISM
     Route: 048
  6. GABAPENTIN [Concomitant]
     Indication: NERVE INJURY
     Route: 048
  7. PERCOCET [Concomitant]
     Indication: PAIN
     Dosage: 5/325MG UP TO 4 TABLETS DAILY
  8. LOMOTIL [Concomitant]
     Indication: DIARRHOEA
     Route: 048
  9. OXYCONTIN [Concomitant]
     Indication: PAIN
     Dosage: AS NEEDED
  10. AMITRIPTYLINE [Concomitant]
     Indication: PAIN
     Dosage: AT BEDTIME
     Route: 048
  11. AMITRIPTYLINE [Concomitant]
     Indication: INSOMNIA
  12. ANASTROZOLE [Concomitant]
     Indication: ENDOCRINE DISORDER
     Route: 048
  13. ZOLOFT [Concomitant]
     Indication: DEPRESSION
     Route: 048
  14. XANAX [Concomitant]
     Indication: PANIC ATTACK
     Route: 048
  15. XANAX [Concomitant]
     Indication: ANXIETY
  16. LOMOTADINE [Concomitant]
     Indication: NAUSEA
     Route: 048
  17. IMITREX [Concomitant]
     Indication: MIGRAINE
     Route: 048
  18. ZOFRAN [Concomitant]
     Indication: NAUSEA
     Route: 048
  19. HYDROXYZINE [Concomitant]
     Indication: HYPERSENSITIVITY
     Route: 048

REACTIONS (4)
  - Fatigue [Not Recovered/Not Resolved]
  - Rash [Not Recovered/Not Resolved]
  - Influenza like illness [Not Recovered/Not Resolved]
  - Somnolence [Not Recovered/Not Resolved]
